FAERS Safety Report 10285186 (Version 1)
Quarter: 2014Q3

REPORT INFORMATION
  Report Type: Spontaneous
  Country: US (occurrence: US)
  Receive Date: 20140708
  Receipt Date: 20140708
  Transmission Date: 20150326
  Serious: Yes (Other)
  Sender: FDA-Public Use
  Company Number: PHHY2014US082349

PATIENT
  Age: 70 Year
  Sex: Female

DRUGS (15)
  1. PRAVASTATIN [Concomitant]
     Active Substance: PRAVASTATIN\PRAVASTATIN SODIUM
  2. ASPIRIN. [Concomitant]
     Active Substance: ASPIRIN
  3. GABAPENTIN. [Suspect]
     Active Substance: GABAPENTIN
     Indication: BACK PAIN
     Dosage: 300 MG, QD
     Dates: start: 201108
  4. GABAPENTIN. [Interacting]
     Active Substance: GABAPENTIN
     Dosage: 300 MG, BID
  5. MEGESTROL [Concomitant]
     Active Substance: MEGESTROL
  6. HYDROCODONE/ACETAMINOPHEN [Concomitant]
     Active Substance: ACETAMINOPHEN\HYDROCODONE
  7. DOXAZOSIN [Concomitant]
     Active Substance: DOXAZOSIN\DOXAZOSIN MESYLATE
  8. METOPROLOL [Concomitant]
     Active Substance: METOPROLOL
  9. FUROSEMIDE. [Concomitant]
     Active Substance: FUROSEMIDE
  10. CLONIDINE. [Interacting]
     Active Substance: CLONIDINE
  11. HYDRALAZINE [Concomitant]
     Active Substance: HYDRALAZINE HYDROCHLORIDE
  12. BISACODYL. [Concomitant]
     Active Substance: BISACODYL
     Dosage: UNK UKN, UNK
  13. TRAMADOL [Interacting]
     Active Substance: TRAMADOL
  14. NIACIN. [Concomitant]
     Active Substance: NIACIN
  15. AMLODIPINE [Concomitant]
     Active Substance: AMLODIPINE BESYLATE

REACTIONS (5)
  - Dyskinesia [Recovered/Resolved]
  - Tremor [Recovered/Resolved]
  - Tardive dyskinesia [Recovered/Resolved]
  - Drug interaction [Unknown]
  - Chorea [Recovered/Resolved]
